FAERS Safety Report 11342544 (Version 1)
Quarter: 2015Q3

REPORT INFORMATION
  Report Type: Spontaneous
  Country: US (occurrence: US)
  Receive Date: 20150805
  Receipt Date: 20150805
  Transmission Date: 20151125
  Serious: No
  Sender: FDA-Public Use
  Company Number: US-TEVA-582977USA

PATIENT
  Sex: Female

DRUGS (2)
  1. PROVIGIL [Suspect]
     Active Substance: MODAFINIL
     Indication: FATIGUE
  2. PROVIGIL [Suspect]
     Active Substance: MODAFINIL
     Indication: CHRONIC FATIGUE SYNDROME
     Route: 065

REACTIONS (7)
  - Fear [Unknown]
  - Product use issue [Unknown]
  - Adverse event [Unknown]
  - Drug resistance [Unknown]
  - Hypersomnia [Unknown]
  - Asthenia [Unknown]
  - Tremor [Unknown]
